FAERS Safety Report 7353873-7 (Version None)
Quarter: 2011Q1

REPORT INFORMATION
  Report Type: 
  Country: None (occurrence: None)
  Receive Date: 20110315
  Receipt Date: 20110303
  Transmission Date: 20110831
  Serious: Yes (Hospitalization)
  Sender: FDA-Public Use
  Company Number: TR-SANOFI-AVENTIS-2011SA013506

PATIENT
  Age: 71 Year
  Sex: Male

DRUGS (6)
  1. CAPECITABINE [Suspect]
     Route: 048
  2. OXALIPLATIN [Suspect]
     Route: 042
     Dates: start: 20060901, end: 20060901
  3. CAPECITABINE [Suspect]
     Route: 048
  4. OXALIPLATIN [Suspect]
     Route: 042
  5. CAPECITABINE [Suspect]
     Route: 048
     Dates: start: 20060901, end: 20060901
  6. CAPECITABINE [Suspect]
     Route: 048

REACTIONS (2)
  - HYPERLIPIDAEMIA [None]
  - PALMAR-PLANTAR ERYTHRODYSAESTHESIA SYNDROME [None]
